FAERS Safety Report 8268970-1 (Version None)
Quarter: 2012Q2

REPORT INFORMATION
  Report Type: 
  Country: None (occurrence: None)
  Receive Date: 20120409
  Receipt Date: 20120329
  Transmission Date: 20120825
  Serious: Yes (Hospitalization, Disabling)
  Sender: FDA-Public Use
  Company Number: US-BAYER-2012-031112

PATIENT
  Sex: Female

DRUGS (1)
  1. YAZ [Suspect]
     Dosage: UNK
     Dates: start: 20070320, end: 20070429

REACTIONS (8)
  - DEEP VEIN THROMBOSIS [None]
  - DEFORMITY [None]
  - PAIN [None]
  - ANXIETY [None]
  - INJURY [None]
  - PULMONARY EMBOLISM [None]
  - ANHEDONIA [None]
  - EMOTIONAL DISTRESS [None]
